FAERS Safety Report 7545369-4 (Version None)
Quarter: 2011Q2

REPORT INFORMATION
  Report Type: 
  Country: None (occurrence: None)
  Receive Date: 20110613
  Receipt Date: 20110613
  Transmission Date: 20111010
  Serious: Yes (Other)
  Sender: FDA-Public Use
  Company Number: None

PATIENT
  Age: 30 Year
  Sex: Male
  Weight: 112.9457 kg

DRUGS (1)
  1. SIMVASTATIN [Suspect]
     Indication: BLOOD CHOLESTEROL INCREASED
     Dosage: 20MG 1 TIME BEFORE BEDT PO
     Route: 048
     Dates: start: 20110301, end: 20110427

REACTIONS (5)
  - TENDONITIS [None]
  - DYSSTASIA [None]
  - MUSCULAR WEAKNESS [None]
  - MUSCLE FATIGUE [None]
  - FATIGUE [None]
